FAERS Safety Report 4614265-4 (Version None)
Quarter: 2005Q1

REPORT INFORMATION
  Report Type: 
  Country: None (occurrence: None)
  Receive Date: 20050321
  Receipt Date: 20050128
  Transmission Date: 20050727
  Serious: Yes (Hospitalization, Other)
  Sender: FDA-Public Use
  Company Number: US-AMGEN-KDL113295

PATIENT
  Sex: Male

DRUGS (3)
  1. ENBREL [Suspect]
     Indication: RHEUMATOID ARTHRITIS
     Route: 058
     Dates: start: 20010401, end: 20040801
  2. METHOTREXATE [Concomitant]
  3. ARTHROTEC [Concomitant]

REACTIONS (6)
  - GASTRIC PERFORATION [None]
  - HEPATITIS [None]
  - PERICARDITIS [None]
  - PLEURAL EFFUSION [None]
  - PNEUMONIA VIRAL [None]
  - PNEUMONITIS [None]
